FAERS Safety Report 25706342 (Version 1)
Quarter: 2025Q3

REPORT INFORMATION
  Report Type: Spontaneous
  Country: US (occurrence: US)
  Receive Date: 20250820
  Receipt Date: 20250820
  Transmission Date: 20251021
  Serious: No
  Sender: CATALYST PHARMA
  Company Number: US-CATALYST PHARMACEUTICALS-US-CATA-25-00784

PATIENT
  Age: 7 Year
  Sex: Male
  Weight: 20.408 kg

DRUGS (11)
  1. AGAMREE [Suspect]
     Active Substance: VAMOROLONE
     Indication: Duchenne muscular dystrophy
     Dosage: 2.6 ML DAILY
     Route: 048
     Dates: start: 20240606
  2. AGAMREE [Suspect]
     Active Substance: VAMOROLONE
     Dosage: 3 ML DAILY
     Route: 048
     Dates: start: 20250502
  3. MIRALAX [Concomitant]
     Active Substance: POLYETHYLENE GLYCOL 3350
     Indication: Constipation
     Dosage: 17 G PER SCOOP ONE SCOOP DAILY
     Route: 048
  4. EX-LAX REGULAR STRENGTH STIMULANT LAXATIVE [Concomitant]
     Active Substance: SENNOSIDES
     Indication: Constipation
     Dosage: 15 MG DAILY
     Route: 048
  5. DAILY PROBIOTICS [Concomitant]
     Indication: Gastrointestinal disorder
     Dosage: ONE CAPSULE TWICE DAILY
     Route: 048
  6. ENALAPRIL MALEATE [Concomitant]
     Active Substance: ENALAPRIL MALEATE
     Indication: Cardiovascular disorder
     Dosage: 1 ML DAILY
     Route: 048
  7. COENZYME Q10 [Concomitant]
     Active Substance: DIETARY SUPPLEMENT\UBIDECARENONE
     Indication: Cardiovascular disorder
     Dosage: 30 MG DAILY
     Route: 048
  8. IRON [Concomitant]
     Active Substance: IRON
     Indication: Iron deficiency
     Dosage: 325(65)FE MG
     Route: 048
  9. LEVOCARNITINE [Concomitant]
     Active Substance: LEVOCARNITINE
     Indication: Hypovitaminosis
     Dosage: 500 MG TWICE DAILY
     Route: 048
  10. VITAMIN D3 [Concomitant]
     Active Substance: CHOLECALCIFEROL
     Indication: Hypovitaminosis
     Dosage: 4000 UNITS DAILY
     Route: 048
  11. VITAMINS [Concomitant]
     Active Substance: VITAMINS
     Indication: Hypovitaminosis
     Dosage: ONE TABLET TWICE DAILY
     Route: 048

REACTIONS (1)
  - Decreased appetite [Not Recovered/Not Resolved]

NARRATIVE: CASE EVENT DATE: 20250501
